FAERS Safety Report 24175686 (Version 1)
Quarter: 2024Q3

REPORT INFORMATION
  Report Type: Spontaneous
  Country: PT (occurrence: PT)
  Receive Date: 20240805
  Receipt Date: 20240805
  Transmission Date: 20241016
  Serious: Yes (Hospitalization, Other)
  Sender: MERCK
  Company Number: PT-009507513-2408PRT001141

PATIENT
  Age: 60 Year
  Sex: Male

DRUGS (2)
  1. PEMBROLIZUMAB [Suspect]
     Active Substance: PEMBROLIZUMAB
     Indication: Non-small cell lung cancer stage IV
     Dosage: UNK
     Dates: start: 202106, end: 2022
  2. PEMBROLIZUMAB [Suspect]
     Active Substance: PEMBROLIZUMAB
     Dosage: UNK
     Dates: start: 202207

REACTIONS (3)
  - Peripheral arterial occlusive disease [Recovered/Resolved]
  - Septic shock [Unknown]
  - Therapy partial responder [Recovered/Resolved]

NARRATIVE: CASE EVENT DATE: 20210101
